FAERS Safety Report 11729257 (Version 1)
Quarter: 2015Q4

REPORT INFORMATION
  Report Type: Spontaneous
  Country: US (occurrence: US)
  Receive Date: 20151110
  Receipt Date: 20151110
  Transmission Date: 20160304
  Serious: No
  Sender: FDA-Public Use
  Company Number: US-ELI_LILLY_AND_COMPANY-US201111001474

PATIENT
  Sex: Female

DRUGS (3)
  1. FORTEO [Suspect]
     Active Substance: TERIPARATIDE
     Dosage: 20 UG, QD
     Route: 058
  2. FORTEO [Suspect]
     Active Substance: TERIPARATIDE
     Indication: OSTEOPOROSIS
     Dosage: 20 UG, QD
     Route: 058
     Dates: start: 20110831
  3. FORTEO [Suspect]
     Active Substance: TERIPARATIDE
     Dosage: 20 UG, QD
     Route: 058

REACTIONS (17)
  - Musculoskeletal pain [Unknown]
  - Arthralgia [Unknown]
  - Alopecia [Recovering/Resolving]
  - Mood altered [Unknown]
  - Muscle spasms [Unknown]
  - Bone pain [Unknown]
  - Dizziness [Unknown]
  - Balance disorder [Unknown]
  - Pain in extremity [Not Recovered/Not Resolved]
  - Pain in extremity [Unknown]
  - Decreased appetite [Unknown]
  - Back pain [Recovered/Resolved]
  - Fatigue [Unknown]
  - Pain [Unknown]
  - Headache [Unknown]
  - Arthralgia [Not Recovered/Not Resolved]
  - Hypertension [Unknown]

NARRATIVE: CASE EVENT DATE: 2011
